FAERS Safety Report 7229472-4 (Version None)
Quarter: 2011Q1

REPORT INFORMATION
  Report Type: 
  Country: None (occurrence: None)
  Receive Date: 20110117
  Receipt Date: 20110111
  Transmission Date: 20110831
  Serious: Yes (Death)
  Sender: FDA-Public Use
  Company Number: US-CELGENEUS-163-21880-11011045

PATIENT
  Sex: Male

DRUGS (12)
  1. DEXAMETHASONE [Concomitant]
     Route: 065
  2. FLONASE [Concomitant]
     Route: 065
  3. REVLIMID [Suspect]
     Indication: MULTIPLE MYELOMA
     Route: 048
     Dates: start: 20100401
  4. CENTRUM [Concomitant]
     Route: 065
  5. NEUPOGEN [Concomitant]
     Dosage: 300/0.5
     Route: 065
  6. ALKERAN [Concomitant]
     Route: 065
  7. MULTI-VITAMINS [Concomitant]
     Route: 065
  8. OXYCODONE HCL AND ACETAMINOPHEN [Concomitant]
     Dosage: 7.5-325
     Route: 065
  9. REVLIMID [Suspect]
     Route: 048
     Dates: start: 20100701
  10. REVLIMID [Suspect]
     Route: 048
     Dates: start: 20101101
  11. PROTONIX [Concomitant]
     Route: 065
  12. ASPIRIN [Concomitant]
     Route: 065

REACTIONS (1)
  - DEATH [None]
